FAERS Safety Report 19884439 (Version 1)
Quarter: 2021Q3

REPORT INFORMATION
  Report Type: Spontaneous
  Country: US (occurrence: US)
  Receive Date: 20210924
  Receipt Date: 20210924
  Transmission Date: 20211014
  Serious: No
  Sender: FDA-Public Use
  Company Number: None

PATIENT

DRUGS (2)
  1. NORCO [Suspect]
     Active Substance: ACETAMINOPHEN\HYDROCODONE BITARTRATE
  2. TORADOL [Suspect]
     Active Substance: KETOROLAC TROMETHAMINE

REACTIONS (2)
  - Theft [None]
  - Wrong technique in product usage process [None]
